FAERS Safety Report 22813629 (Version 2)
Quarter: 2024Q3

REPORT INFORMATION
  Report Type: Spontaneous
  Country: US (occurrence: US)
  Receive Date: 20230811
  Receipt Date: 20240710
  Transmission Date: 20241017
  Serious: No
  Sender: ROCHE
  Company Number: US-ROCHE-3332584

PATIENT
  Sex: Female

DRUGS (1)
  1. ALECENSA [Suspect]
     Active Substance: ALECTINIB HYDROCHLORIDE
     Indication: Lung neoplasm malignant
     Route: 048
     Dates: start: 201810

REACTIONS (4)
  - Skin discolouration [Unknown]
  - Peripheral swelling [Unknown]
  - Back pain [Unknown]
  - Hepatic steatosis [Unknown]
